FAERS Safety Report 11538486 (Version 2)
Quarter: 2015Q3

REPORT INFORMATION
  Report Type: Spontaneous
  Country: US (occurrence: US)
  Receive Date: 20150922
  Receipt Date: 20150923
  Transmission Date: 20151125
  Serious: Yes (Other)
  Sender: FDA-Public Use
  Company Number: US-SA-2015SA140107

PATIENT
  Age: 68 Year
  Sex: Male

DRUGS (9)
  1. ELIQUIS [Suspect]
     Active Substance: APIXABAN
     Dosage: DOSE: 2.5?DAILY DOSE: 5
  2. ALLOPURINOL. [Suspect]
     Active Substance: ALLOPURINOL
  3. LASIX [Suspect]
     Active Substance: FUROSEMIDE
     Route: 065
  4. FLOMAX [Suspect]
     Active Substance: TAMSULOSIN HYDROCHLORIDE
  5. COQ10 [Suspect]
     Active Substance: UBIDECARENONE
  6. AMIODARONE [Suspect]
     Active Substance: AMIODARONE
  7. PROSCAR [Suspect]
     Active Substance: FINASTERIDE
  8. ASPIRIN. [Suspect]
     Active Substance: ASPIRIN
  9. LIPITOR [Suspect]
     Active Substance: ATORVASTATIN CALCIUM

REACTIONS (1)
  - Haemorrhage [Unknown]
